FAERS Safety Report 17526609 (Version 1)
Quarter: 2020Q1

REPORT INFORMATION
  Report Type: Spontaneous
  Country: BR (occurrence: BR)
  Receive Date: 20200311
  Receipt Date: 20200311
  Transmission Date: 20200409
  Serious: Yes (Other)
  Sender: FDA-Public Use
  Company Number: BR-PFIZER INC-2020105708

PATIENT

DRUGS (1)
  1. DEPO-PROVERA [Suspect]
     Active Substance: MEDROXYPROGESTERONE ACETATE
     Indication: CONTRACEPTION
     Dosage: 150 MG, CYCLIC (REGULARLY EVERY 90 DAYS)
     Route: 064
     Dates: start: 20170306, end: 20191007

REACTIONS (2)
  - Foetal hypokinesia [Unknown]
  - Maternal exposure during pregnancy [Unknown]
